FAERS Safety Report 8488328-X (Version None)
Quarter: 2012Q3

REPORT INFORMATION
  Report Type: 
  Country: None (occurrence: None)
  Receive Date: 20120705
  Receipt Date: 20120626
  Transmission Date: 20120928
  Serious: Yes (Death, Hospitalization)
  Sender: FDA-Public Use
  Company Number: US-JNJFOC-20120402534

PATIENT
  Sex: Male

DRUGS (10)
  1. REMICADE [Suspect]
     Indication: CROHN'S DISEASE
     Route: 042
     Dates: start: 20120208
  2. ZOCOR [Concomitant]
     Route: 065
  3. PRILOSEC [Concomitant]
     Route: 065
  4. MESALAMINE [Concomitant]
     Route: 065
  5. ENALAPRIL MALEATE [Concomitant]
     Route: 065
  6. REMICADE [Suspect]
     Route: 042
     Dates: start: 20120412
  7. FOLIC ACID [Concomitant]
     Route: 065
  8. REMICADE [Suspect]
     Route: 042
     Dates: start: 20120606
  9. AMLODIPINE [Concomitant]
     Route: 065
  10. CHLORTHALIDONE [Concomitant]
     Route: 065

REACTIONS (3)
  - CARDIAC ARREST [None]
  - PNEUMONIA [None]
  - DEATH [None]
